FAERS Safety Report 23340109 (Version 2)
Quarter: 2024Q1

REPORT INFORMATION
  Report Type: Report from Study
  Country: US (occurrence: US)
  Receive Date: 20231227
  Receipt Date: 20240314
  Transmission Date: 20240410
  Serious: Yes (Other)
  Sender: FDA-Public Use
  Company Number: US-ABBVIE-5546001

PATIENT
  Sex: Male

DRUGS (2)
  1. RINVOQ [Suspect]
     Active Substance: UPADACITINIB
     Indication: Colitis ulcerative
     Dosage: FORM STRENGTH: 45 MILLIGRAM?LAST ADMIN DATE: DEC 2023
     Route: 048
     Dates: start: 20231206
  2. RINVOQ [Suspect]
     Active Substance: UPADACITINIB
     Indication: Colitis ulcerative
     Route: 048
     Dates: start: 20231226

REACTIONS (13)
  - Pulmonary oedema [Recovering/Resolving]
  - Pain [Unknown]
  - Migraine [Recovering/Resolving]
  - Abdominal pain [Recovering/Resolving]
  - Discomfort [Unknown]
  - Pneumonia [Recovering/Resolving]
  - Gastrointestinal disorder [Not Recovered/Not Resolved]
  - Swelling [Recovering/Resolving]
  - Body temperature increased [Recovering/Resolving]
  - Infection [Unknown]
  - Liver disorder [Not Recovered/Not Resolved]
  - Pancreatic disorder [Not Recovered/Not Resolved]
  - Weight increased [Unknown]

NARRATIVE: CASE EVENT DATE: 20230101
